FAERS Safety Report 8378369-5 (Version None)
Quarter: 2012Q2

REPORT INFORMATION
  Report Type: 
  Country: None (occurrence: None)
  Receive Date: 20120522
  Receipt Date: 20120514
  Transmission Date: 20120825
  Serious: Yes (Other)
  Sender: FDA-Public Use
  Company Number: CHPA2012GB008708

PATIENT
  Sex: Female

DRUGS (4)
  1. NICOTINE [Suspect]
     Indication: SMOKING CESSATION THERAPY
     Dosage: 9-10 GUMS A DAY, FIVE YEARS
  2. PHENERGAN [Concomitant]
  3. SEROQUEL [Concomitant]
  4. TRAMADOL HYDROCHLORIDE [Concomitant]

REACTIONS (3)
  - INCORRECT DRUG ADMINISTRATION DURATION [None]
  - NICOTINE DEPENDENCE [None]
  - DRUG DEPENDENCE [None]
